FAERS Safety Report 16906098 (Version 1)
Quarter: 2019Q4

REPORT INFORMATION
  Report Type: Spontaneous
  Country: RU (occurrence: RU)
  Receive Date: 20191010
  Receipt Date: 20191010
  Transmission Date: 20200122
  Serious: Yes (Hospitalization)
  Sender: FDA-Public Use
  Company Number: RU-BIOGEN-2019BI00793346

PATIENT
  Age: 31 Year
  Sex: Female
  Weight: 50 kg

DRUGS (1)
  1. TECFIDERA [Suspect]
     Active Substance: DIMETHYL FUMARATE
     Indication: MULTIPLE SCLEROSIS
     Route: 048
     Dates: start: 20180326, end: 20180415

REACTIONS (3)
  - Syncope [Recovered/Resolved]
  - Abdominal pain upper [Recovered/Resolved]
  - Appetite disorder [Recovered/Resolved]
